FAERS Safety Report 18474073 (Version 2)
Quarter: 2020Q4

REPORT INFORMATION
  Report Type: Spontaneous
  Country: US (occurrence: US)
  Receive Date: 20201106
  Receipt Date: 20201112
  Transmission Date: 20210114
  Serious: No
  Sender: FDA-Public Use
  Company Number: US-PFIZER INC-2020300705

PATIENT
  Age: 72 Year
  Sex: Female

DRUGS (2)
  1. BRAFTOVI [Suspect]
     Active Substance: ENCORAFENIB
     Dosage: 225 MG, DAILY (3 CAPSULE ORALLY DAILY. TOTAL DOSE OF 225MG)
     Route: 048
  2. MEKTOVI [Suspect]
     Active Substance: BINIMETINIB
     Dosage: 15 MG, 2X/DAY (1 TABLET IN AM AND 1 TABLET IN PM )

REACTIONS (2)
  - Neoplasm progression [Unknown]
  - Off label use [Unknown]
